FAERS Safety Report 5514248-6 (Version None)
Quarter: 2007Q4

REPORT INFORMATION
  Report Type: 
  Country: None (occurrence: None)
  Receive Date: 20071031
  Receipt Date: 20070509
  Transmission Date: 20080405
  Serious: Yes (Disabling, Other)
  Sender: FDA-Public Use
  Company Number: US020112

PATIENT
  Sex: Male
  Weight: 52.6173 kg

DRUGS (6)
  1. PROVIGIL [Suspect]
     Indication: DEPRESSION
     Dosage: 200 MG QD ORAL
     Route: 048
     Dates: start: 20070504, end: 20070508
  2. PROVIGIL [Suspect]
     Indication: SOMNOLENCE
     Dosage: 200 MG QD ORAL
     Route: 048
     Dates: start: 20070504, end: 20070508
  3. BUPROPION HCL [Concomitant]
  4. LAMICTAL [Concomitant]
  5. RESTORIL /00393701/ [Concomitant]
  6. PERCOCET [Concomitant]

REACTIONS (4)
  - DIZZINESS [None]
  - PALPITATIONS [None]
  - URINARY RETENTION [None]
  - VISION BLURRED [None]
